FAERS Safety Report 17448702 (Version 1)
Quarter: 2020Q1

REPORT INFORMATION
  Report Type: Report from Study
  Country: US (occurrence: US)
  Receive Date: 20200224
  Receipt Date: 20200224
  Transmission Date: 20200409
  Serious: Yes (Hospitalization, Other)
  Sender: FDA-Public Use
  Company Number: US-ROCHE-2550700

PATIENT

DRUGS (6)
  1. CYCLOPHOSPHAMIDE. [Suspect]
     Active Substance: CYCLOPHOSPHAMIDE
     Indication: DIFFUSE LARGE B-CELL LYMPHOMA
     Dosage: DAY 1
     Route: 042
  2. DOXORUBICIN [Suspect]
     Active Substance: DOXORUBICIN
     Indication: DIFFUSE LARGE B-CELL LYMPHOMA
     Dosage: DAY 1
     Route: 042
  3. VINCRISTINE [Suspect]
     Active Substance: VINCRISTINE
     Indication: DIFFUSE LARGE B-CELL LYMPHOMA
     Dosage: CAPPED DOSE DAY 1
     Route: 042
  4. PREDNISONE. [Suspect]
     Active Substance: PREDNISONE
     Indication: DIFFUSE LARGE B-CELL LYMPHOMA
     Dosage: DAY 1 -5
     Route: 048
  5. PEMBROLIZUMAB. [Suspect]
     Active Substance: PEMBROLIZUMAB
     Indication: DIFFUSE LARGE B-CELL LYMPHOMA
     Route: 042
  6. RITUXIMAB. [Suspect]
     Active Substance: RITUXIMAB
     Indication: DIFFUSE LARGE B-CELL LYMPHOMA
     Dosage: DAY 1
     Route: 042

REACTIONS (11)
  - Febrile neutropenia [Unknown]
  - Cholecystitis [Unknown]
  - Neutropenic colitis [Unknown]
  - Ejection fraction decreased [Unknown]
  - Pulmonary embolism [Unknown]
  - Gastrointestinal haemorrhage [Unknown]
  - Syncope [Unknown]
  - Nervous system disorder [Unknown]
  - Respiratory syncytial virus infection [Unknown]
  - Pyrexia [Unknown]
  - Gastrointestinal disorder [Unknown]
